FAERS Safety Report 9066393 (Version 4)
Quarter: 2013Q1

REPORT INFORMATION
  Report Type: Report from Study
  Country: JP (occurrence: JP)
  Receive Date: 20130214
  Receipt Date: 20130320
  Transmission Date: 20140127
  Serious: Yes (Hospitalization)
  Sender: FDA-Public Use
  Company Number: JP-ELI_LILLY_AND_COMPANY-JP201302001998

PATIENT
  Age: 68 None
  Sex: Male
  Weight: 40.7 kg

DRUGS (6)
  1. PEMETREXED [Suspect]
     Indication: NON-SMALL CELL LUNG CANCER STAGE IV
     Dosage: 500 MG/M2, UNK
     Route: 042
     Dates: start: 20121226, end: 20130118
  2. GEFITINIB [Suspect]
     Indication: NON-SMALL CELL LUNG CANCER STAGE IV
     Dosage: 250 MG, QD
     Route: 048
     Dates: start: 20121226, end: 20130205
  3. VITAMIN B12 [Concomitant]
  4. PANVITAN [Concomitant]
     Dosage: 1 G, QD
     Route: 048
     Dates: start: 20121214, end: 20130224
  5. AMARYL [Concomitant]
     Dosage: 1 MG, QD
     Route: 048
     Dates: start: 2010
  6. OLMETEC [Concomitant]
     Dosage: 10 MG, QD
     Route: 048
     Dates: start: 2010, end: 20130205

REACTIONS (2)
  - Dehydration [Recovered/Resolved]
  - Hepatic enzyme increased [Recovered/Resolved]
